FAERS Safety Report 15652857 (Version 1)
Quarter: 2018Q4

REPORT INFORMATION
  Report Type: Spontaneous
  Country: US (occurrence: US)
  Receive Date: 20181123
  Receipt Date: 20181123
  Transmission Date: 20190205
  Serious: No
  Sender: FDA-Public Use
  Company Number: US-NOVOPROD-595260

PATIENT
  Age: 67 Year
  Sex: Female

DRUGS (2)
  1. NOVOLOG [Suspect]
     Active Substance: INSULIN ASPART
     Indication: DIABETES MELLITUS
     Dosage: 25 UNITS IN THE MORNING, 30 UNITS IN THE AFTERNOON AND 30 UNITS IN THE EVENING
     Route: 058
     Dates: start: 2017
  2. NOVOLOG [Suspect]
     Active Substance: INSULIN ASPART
     Dosage: 25 UNITS IN THE MORNING, 30 UNITS IN THE AFTERNOON AND 30 UNITS IN THE EVENING
     Route: 058
     Dates: start: 2017

REACTIONS (3)
  - Nasopharyngitis [Not Recovered/Not Resolved]
  - Product complaint [Not Recovered/Not Resolved]
  - Injection site bruising [Not Recovered/Not Resolved]

NARRATIVE: CASE EVENT DATE: 201803
